FAERS Safety Report 18379958 (Version 5)
Quarter: 2022Q2

REPORT INFORMATION
  Report Type: Other
  Country: US (occurrence: None)
  Receive Date: 20201014
  Receipt Date: 20220523
  Transmission Date: 20220721
  Serious: Yes (Hospitalization, Other)
  Sender: FDA-Public Use
  Company Number: US-ROCHE-2690380

PATIENT
  Age: 44 Year
  Sex: Female
  Weight: 97.156 kg

DRUGS (4)
  1. OCREVUS [Suspect]
     Active Substance: OCRELIZUMAB
     Indication: Relapsing-remitting multiple sclerosis
     Route: 042
     Dates: start: 201311
  2. OCREVUS [Suspect]
     Active Substance: OCRELIZUMAB
     Indication: Multiple sclerosis
     Dosage: LAST DOSE
     Route: 042
     Dates: start: 20201103
  3. SODIUM FLUORIDE [Concomitant]
     Active Substance: SODIUM FLUORIDE
  4. ALLEGRA [Concomitant]
     Active Substance: FEXOFENADINE HYDROCHLORIDE
     Indication: Seasonal allergy
     Route: 048
     Dates: start: 201905

REACTIONS (8)
  - COVID-19 [Recovered/Resolved]
  - Pneumonia [Recovered/Resolved]
  - Hypothyroidism [Unknown]
  - Attention deficit hyperactivity disorder [Unknown]
  - Drug hypersensitivity [Unknown]
  - Nausea [Recovering/Resolving]
  - Blood immunoglobulin G increased [Recovered/Resolved]
  - Oxygen saturation abnormal [Recovering/Resolving]

NARRATIVE: CASE EVENT DATE: 20170901
